FAERS Safety Report 4455980-5 (Version None)
Quarter: 2004Q3

REPORT INFORMATION
  Report Type: 
  Country: None (occurrence: None)
  Receive Date: 20040922
  Receipt Date: 20040909
  Transmission Date: 20050211
  Serious: Yes (Hospitalization)
  Sender: FDA-Public Use
  Company Number: PT-GLAXOSMITHKLINE-B0345430A

PATIENT
  Age: 21 Year
  Sex: Male
  Weight: 80 kg

DRUGS (4)
  1. VALTREX [Suspect]
     Dosage: 3G PER DAY
     Route: 048
     Dates: start: 20040814
  2. CIPROFLOXACIN [Suspect]
     Dosage: 300MG PER DAY
     Route: 048
     Dates: start: 20040814, end: 20040817
  3. NIMESULIDE [Suspect]
     Dosage: 300MG PER DAY
     Dates: start: 20040814
  4. RABEPRAZOLE SODIUM [Suspect]
     Dosage: 20MG PER DAY
     Route: 048
     Dates: start: 20040814

REACTIONS (8)
  - APHTHOUS STOMATITIS [None]
  - CHROMATURIA [None]
  - DISCOMFORT [None]
  - EXPOSURE TO COMMUNICABLE DISEASE [None]
  - PHARYNGOLARYNGEAL PAIN [None]
  - SEXUALLY TRANSMITTED DISEASE [None]
  - SWEAT GLAND DISORDER [None]
  - SWELLING [None]
